FAERS Safety Report 9301709 (Version 2)
Quarter: 2013Q2

REPORT INFORMATION
  Report Type: Report from Study
  Country: AR (occurrence: AR)
  Receive Date: 20130521
  Receipt Date: 20130529
  Transmission Date: 20140414
  Serious: Yes (Death)
  Sender: FDA-Public Use
  Company Number: AR-ROCHE-1226940

PATIENT
  Sex: Male

DRUGS (1)
  1. LUCENTIS [Suspect]
     Indication: MACULOPATHY
     Route: 050
     Dates: start: 2011

REACTIONS (1)
  - Gastric cancer [Fatal]
